FAERS Safety Report 25709811 (Version 2)
Quarter: 2025Q3

REPORT INFORMATION
  Report Type: Spontaneous
  Country: US (occurrence: US)
  Receive Date: 20250821
  Receipt Date: 20250910
  Transmission Date: 20251021
  Serious: Yes (Death, Hospitalization, Other)
  Sender: TEVA
  Company Number: US-TEVA-VS-3362735

PATIENT
  Age: 54 Year
  Sex: Male

DRUGS (7)
  1. CAPECITABINE [Suspect]
     Active Substance: CAPECITABINE
     Indication: Skin squamous cell carcinoma metastatic
     Route: 065
     Dates: start: 2021, end: 2021
  2. CETUXIMAB [Suspect]
     Active Substance: CETUXIMAB
     Indication: Skin squamous cell carcinoma metastatic
     Route: 065
     Dates: start: 2021, end: 2021
  3. PEMBROLIZUMAB [Suspect]
     Active Substance: PEMBROLIZUMAB
     Indication: Skin squamous cell carcinoma metastatic
     Dosage: CYCLICAL, CIO COMBINATION THERAPY
     Route: 065
     Dates: start: 202110
  4. PACLITAXEL [Suspect]
     Active Substance: PACLITAXEL
     Indication: Skin squamous cell carcinoma metastatic
     Dosage: CYCLICAL, CIO COMBINATION THERAPY
     Route: 065
     Dates: start: 202110
  5. IMIQUIMOD [Suspect]
     Active Substance: IMIQUIMOD
     Indication: Skin squamous cell carcinoma metastatic
     Route: 061
     Dates: start: 2021
  6. CARBOPLATIN [Suspect]
     Active Substance: CARBOPLATIN
     Indication: Skin squamous cell carcinoma metastatic
     Dosage: CYCLICAL; AUC 3, CIO COMBINATION THERAPY
     Route: 065
     Dates: start: 202110
  7. CARBOPLATIN [Suspect]
     Active Substance: CARBOPLATIN
     Indication: Skin squamous cell carcinoma metastatic
     Route: 065
     Dates: start: 2021, end: 2021

REACTIONS (1)
  - Drug ineffective [Fatal]
